FAERS Safety Report 10880672 (Version 1)
Quarter: 2015Q1

REPORT INFORMATION
  Report Type: Spontaneous
  Country: US (occurrence: None)
  Receive Date: 20150225
  Receipt Date: 20150225
  Transmission Date: 20150721
  Serious: Yes (Other)
  Sender: FDA-Public Use
  Company Number: 001871348A

PATIENT
  Age: 50 Year
  Sex: Female

DRUGS (6)
  1. MEANINGFUL BEAUTY CINDY CRAWFORD ANTIOXIDANT SPF 20 UVA/UVB [Suspect]
     Active Substance: AVOBENZONE\OCTINOXATE\OCTISALATE\OXYBENZONE
     Dosage: TWICE DAILY DERMAL
     Dates: start: 20140415, end: 201407
  2. ALLERGY INJECTIONS [Concomitant]
  3. CHEMOTHERAPEUTIC AGENTS [Concomitant]
  4. ALLEGRA [Concomitant]
     Active Substance: FEXOFENADINE HYDROCHLORIDE
  5. NECK TREATMENT SPF 15 [Concomitant]
  6. INHALER FOR ASTHMA [Concomitant]

REACTIONS (4)
  - Dyspnoea [None]
  - Swelling face [None]
  - Eye pruritus [None]
  - Lip swelling [None]

NARRATIVE: CASE EVENT DATE: 201407
